FAERS Safety Report 18869931 (Version 1)
Quarter: 2021Q1

REPORT INFORMATION
  Report Type: Spontaneous
  Country: ES (occurrence: ES)
  Receive Date: 20210209
  Receipt Date: 20210209
  Transmission Date: 20210420
  Serious: Yes (Other)
  Sender: FDA-Public Use
  Company Number: ES-AMGEN-ESPSP2021019095

PATIENT
  Age: 58 Year
  Sex: Male

DRUGS (2)
  1. TACROLIMUS. [Concomitant]
     Active Substance: TACROLIMUS
  2. DARBEPOETIN ALFA [Suspect]
     Active Substance: DARBEPOETIN ALFA
     Indication: PRODUCT USED FOR UNKNOWN INDICATION
     Dosage: UNK
     Route: 065

REACTIONS (2)
  - Iron overload [Unknown]
  - Aplasia pure red cell [Recovered/Resolved]
